FAERS Safety Report 6825211-7 (Version None)
Quarter: 2010Q3

REPORT INFORMATION
  Report Type: 
  Country: None (occurrence: None)
  Receive Date: 20100708
  Receipt Date: 20061231
  Transmission Date: 20110219
  Serious: Yes (Other)
  Sender: FDA-Public Use
  Company Number: US-PFIZER INC-2007001202

PATIENT
  Sex: Male
  Weight: 90.72 kg

DRUGS (3)
  1. CHANTIX [Suspect]
     Indication: EX-TOBACCO USER
     Dates: start: 20061231
  2. ALCOHOL [Interacting]
  3. TETRACYCLINE [Concomitant]

REACTIONS (3)
  - AGGRESSION [None]
  - DRUG INTERACTION [None]
  - MANIA [None]
